FAERS Safety Report 6208280-7 (Version None)
Quarter: 2009Q2

REPORT INFORMATION
  Report Type: 
  Country: None (occurrence: None)
  Receive Date: 20090522
  Receipt Date: 20090512
  Transmission Date: 20091009
  Serious: Yes (Death, Other)
  Sender: FDA-Public Use
  Company Number: POMP-1000597

PATIENT
  Age: 5 Month
  Sex: Female

DRUGS (9)
  1. MYOZYME [Suspect]
     Indication: GLYCOGEN STORAGE DISEASE TYPE II
     Dosage: 20 MG/KG.Q2W,INTRAVENOUS
     Route: 042
     Dates: start: 20090417, end: 20090417
  2. RITUXIMAB [Concomitant]
  3. METHOTREXATE [Concomitant]
  4. FRUSEMIDE (FUROSEMIDE) [Concomitant]
  5. SPIRONOLACTONE [Concomitant]
  6. ENOXIMONE (ENOXIMONE) [Concomitant]
  7. DOPAMINE HCL [Concomitant]
  8. NYSTATIN [Concomitant]
  9. CLONIDINE [Concomitant]

REACTIONS (6)
  - BRONCHIAL DISORDER [None]
  - CARDIAC ARREST [None]
  - COXSACKIE VIRAL INFECTION [None]
  - ECHO VIRUS INFECTION [None]
  - HYPOTENSION [None]
  - RESPIRATORY DISTRESS [None]
